FAERS Safety Report 13965189 (Version 1)
Quarter: 2017Q3

REPORT INFORMATION
  Report Type: Spontaneous
  Country: PE (occurrence: PE)
  Receive Date: 20170913
  Receipt Date: 20170913
  Transmission Date: 20171128
  Serious: Yes (Death, Hospitalization)
  Sender: FDA-Public Use
  Company Number: PE-BAYER-2017-174607

PATIENT
  Age: 34 Year
  Sex: Male

DRUGS (9)
  1. DIDANOSINE. [Concomitant]
     Active Substance: DIDANOSINE
     Dosage: UNK
  2. CIPROFLOXACIN BETAIN [Suspect]
     Active Substance: CIPROFLOXACIN
     Dosage: 400 MG, BID
  3. NITAZOXANIDE [Concomitant]
     Active Substance: NITAZOXANIDE
     Dosage: 500 MG, TID
     Route: 048
  4. ALBENDAZOLE [Concomitant]
     Active Substance: ALBENDAZOLE
  5. NELFINAVIR [Concomitant]
     Active Substance: NELFINAVIR
  6. SULFAMETHOXAZOLE W/TRIMETHOPRIM [Concomitant]
     Active Substance: SULFAMETHOXAZOLE\TRIMETHOPRIM
     Indication: PROPHYLAXIS
     Route: 048
  7. RITONAVIR. [Concomitant]
     Active Substance: RITONAVIR
  8. EFAVIRENZ [Concomitant]
     Active Substance: EFAVIRENZ
     Dosage: UNK
  9. LAMIVUDINE. [Concomitant]
     Active Substance: LAMIVUDINE
     Dosage: UNK

REACTIONS (1)
  - Drug ineffective [Fatal]
